FAERS Safety Report 20318840 (Version 2)
Quarter: 2022Q1

REPORT INFORMATION
  Report Type: Spontaneous
  Country: CN (occurrence: None)
  Receive Date: 20220110
  Receipt Date: 20220112
  Transmission Date: 20220424
  Serious: Yes (Other)
  Sender: FDA-Public Use
  Company Number: 2022A006441

PATIENT
  Age: 54 Year
  Sex: Male

DRUGS (6)
  1. DURVALUMAB [Suspect]
     Active Substance: DURVALUMAB
     Indication: Lung squamous cell carcinoma stage III
     Route: 042
     Dates: start: 20200326, end: 20200806
  2. GEMCITABINE [Suspect]
     Active Substance: GEMCITABINE
     Route: 065
     Dates: start: 20191122, end: 20191213
  3. NEDAPLATIN [Suspect]
     Active Substance: NEDAPLATIN
     Route: 065
     Dates: start: 20191122, end: 20191213
  4. ETOPOSIDE [Suspect]
     Active Substance: ETOPOSIDE
     Route: 065
     Dates: start: 20200122, end: 20200224
  5. CEFOPERAZONE [Suspect]
     Active Substance: CEFOPERAZONE
     Route: 065
     Dates: start: 20200819, end: 20200831
  6. SULBACTAM [Suspect]
     Active Substance: SULBACTAM
     Route: 065
     Dates: start: 20200819, end: 20200831

REACTIONS (1)
  - Pulmonary tuberculosis [Recovering/Resolving]
